FAERS Safety Report 10047494 (Version 3)
Quarter: 2014Q2

REPORT INFORMATION
  Report Type: Report from Study
  Country: LT (occurrence: LT)
  Receive Date: 20140331
  Receipt Date: 20140407
  Transmission Date: 20141212
  Serious: Yes (Hospitalization)
  Sender: FDA-Public Use
  Company Number: LT-ASTELLAS-2013US003787

PATIENT
  Age: 64 Year
  Sex: Male
  Weight: 79 kg

DRUGS (8)
  1. PLACEBO [Suspect]
     Indication: NON-SMALL CELL LUNG CANCER
     Dosage: UNK
     Route: 048
     Dates: start: 20120501
  2. PLACEBO [Suspect]
     Dosage: UNK
     Route: 048
  3. OMEPRAZOL                          /00661201/ [Suspect]
     Indication: GASTROOESOPHAGEAL REFLUX DISEASE
     Dosage: UNK
     Route: 065
     Dates: start: 201111
  4. SALBUTAMOL [Concomitant]
     Indication: CHRONIC OBSTRUCTIVE PULMONARY DISEASE
     Dosage: UNK
     Route: 065
     Dates: start: 201112
  5. ZOFENOPRIL [Concomitant]
     Indication: HYPERTENSIVE HEART DISEASE
     Dosage: UNK
     Route: 065
     Dates: start: 20130327
  6. METOPROLOL [Concomitant]
     Indication: PRODUCT USED FOR UNKNOWN INDICATION
     Dosage: UNK
     Route: 065
  7. ASPIRIN [Concomitant]
     Indication: MYOCARDIAL ISCHAEMIA
     Dosage: UNK
     Dates: start: 20130327
  8. INDOMETACIN [Concomitant]
     Indication: NON-CARDIAC CHEST PAIN
     Dosage: UNK
     Route: 065
     Dates: start: 20130401, end: 20130404

REACTIONS (1)
  - Chronic obstructive pulmonary disease [Recovered/Resolved]
